FAERS Safety Report 5618929-5 (Version None)
Quarter: 2008Q1

REPORT INFORMATION
  Report Type: 
  Country: None (occurrence: None)
  Receive Date: 20080207
  Receipt Date: 20080205
  Transmission Date: 20080703
  Serious: Yes (Life-Threatening, Hospitalization)
  Sender: FDA-Public Use
  Company Number: FR-SANOFI-SYNTHELABO-F01200800187

PATIENT
  Sex: Male

DRUGS (3)
  1. OXALIPLATIN [Suspect]
     Indication: RECTAL CANCER
     Route: 065
  2. RADIOTHERAPY [Suspect]
     Dosage: CUMULATIVE DOSE: 50 GY UNK
     Dates: start: 20071204, end: 20080116
  3. CAPECITABINE [Suspect]
     Route: 048
     Dates: start: 20071204

REACTIONS (1)
  - INTESTINAL PERFORATION [None]
